FAERS Safety Report 25710730 (Version 4)
Quarter: 2025Q4

REPORT INFORMATION
  Report Type: Spontaneous
  Country: US (occurrence: US)
  Receive Date: 20250821
  Receipt Date: 20251123
  Transmission Date: 20260118
  Serious: No
  Sender: SANOFI AVENTIS
  Company Number: US-SA-2025SA247233

PATIENT
  Age: 60 Year
  Sex: Female

DRUGS (30)
  1. DUPIXENT [Suspect]
     Active Substance: DUPILUMAB
     Indication: Chronic obstructive pulmonary disease
     Dosage: 300 MG, QOW
     Route: 058
     Dates: start: 20250701
  2. SINGULAIR [Concomitant]
     Active Substance: MONTELUKAST SODIUM
     Dosage: 10MG QD AT BEDTIME
     Route: 048
     Dates: start: 20240930, end: 20251028
  3. PHENERGAN [Concomitant]
     Active Substance: PROMETHAZINE HYDROCHLORIDE
     Indication: Nausea
     Dosage: 25MG Q8H
     Route: 048
     Dates: start: 20240825
  4. PHENERGAN [Concomitant]
     Active Substance: PROMETHAZINE HYDROCHLORIDE
     Indication: Vomiting
  5. AIMOVIG [Concomitant]
     Active Substance: ERENUMAB-AOOE
     Dosage: 70MG Q4W
     Route: 058
     Dates: start: 20250827
  6. CYMBALTA [Concomitant]
     Active Substance: DULOXETINE HYDROCHLORIDE
     Dosage: 60MG QD
     Route: 048
     Dates: start: 20240930, end: 20250917
  7. CHANTIX [Concomitant]
     Active Substance: VARENICLINE TARTRATE
     Dosage: TAKE 1 TABLET (1 MG TOTAL) BY MOUTH 2 (TWO) TIMES A DAY
     Route: 048
     Dates: start: 20250402, end: 20250912
  8. ALBUTEROL SULFATE [Concomitant]
     Active Substance: ALBUTEROL SULFATE
     Indication: Wheezing
     Dosage: INHALE 3 ML (1.25 MG TOTAL) BY NEBULIZATION EVERY 6 HOURS PRN
     Route: 055
     Dates: start: 20240711
  9. TYLENOL [Concomitant]
     Active Substance: ACETAMINOPHEN
     Indication: Pain
     Dosage: 300-60 MG PER TABLET, 2 TIMES AS NEEDED
     Route: 048
     Dates: start: 20250827
  10. MINIPRESS [Concomitant]
     Active Substance: PRAZOSIN HYDROCHLORIDE
     Dosage: 1MG EVERY DAY AT BEDTIME
     Route: 048
     Dates: start: 20250519
  11. ZYRTEC [Concomitant]
     Active Substance: CETIRIZINE HYDROCHLORIDE
     Dosage: 10MG QD
     Route: 048
     Dates: start: 20250126
  12. BUSPAR [Concomitant]
     Active Substance: BUSPIRONE HYDROCHLORIDE
     Indication: Anxiety
     Dosage: 5MG TID
     Route: 048
     Dates: start: 20250423, end: 20251017
  13. ZITHROMAX [Concomitant]
     Active Substance: AZITHROMYCIN DIHYDRATE
     Dosage: 250MG TAKE 2 TABLETS BY MOUTH THE FIRST DAY, THEN TAKE 1 TABLET BY MOUTH ONCE DAILY FOR 4 DAYS
     Route: 048
     Dates: start: 20250827
  14. VENTOLIN HFA [Concomitant]
     Active Substance: ALBUTEROL SULFATE
     Indication: Wheezing
     Dosage: INHALE 2 PUFFS BY MOUTH 4 TIMES A DAY AS NEEDED
     Route: 055
     Dates: start: 20250311
  15. VENTOLIN HFA [Concomitant]
     Active Substance: ALBUTEROL SULFATE
     Indication: Dyspnoea
  16. VITAMIN D3 [Concomitant]
     Active Substance: CHOLECALCIFEROL
     Dosage: 125 MCG QD
     Route: 048
     Dates: start: 20250126
  17. ZYPREXA [Concomitant]
     Active Substance: OLANZAPINE
     Dosage: 20MG QD
     Route: 048
     Dates: start: 20250806
  18. DESYREL [Concomitant]
     Active Substance: TRAZODONE HYDROCHLORIDE
     Indication: Insomnia
     Dosage: TAKE 2 TABLETS (150MG) BY MOUTH AT BEDTIME
     Route: 048
     Dates: start: 20250402
  19. TOPROL XL [Concomitant]
     Active Substance: METOPROLOL SUCCINATE
     Dosage: 0.5MG QD
     Route: 048
     Dates: start: 20250402
  20. AMITIZA [Concomitant]
     Active Substance: LUBIPROSTONE
     Dosage: TAKE 1 CAPSULE BY MOUTH TWICE A DAY WITH MEALS
     Route: 048
     Dates: start: 20250827
  21. LIPITOR [Concomitant]
     Active Substance: ATORVASTATIN CALCIUM
     Dosage: 80MG QD
     Route: 048
     Dates: start: 20240905, end: 20251111
  22. FOSAMAX [Concomitant]
     Active Substance: ALENDRONATE SODIUM
     Dosage: TAKE 1 TABLET (70 MG TOTAL) BY MOUTH ONCE A WEEK - ORAL
     Route: 048
     Dates: start: 20250113
  23. EPIPEN [Concomitant]
     Active Substance: EPINEPHRINE
     Indication: Anaphylactic reaction
     Dosage: 0.3MG
     Route: 030
     Dates: start: 20250623
  24. FLONASE [Concomitant]
     Active Substance: FLUTICASONE PROPIONATE
     Dosage: USE 2 SPRAYS INTO EACH NOSTRIL ONCE DAILY
     Route: 045
     Dates: start: 20240930
  25. DELTASONE [Concomitant]
     Active Substance: PREDNISONE
     Dosage: 20MG QD
     Route: 048
     Dates: start: 20250827
  26. AIMOVIG [Concomitant]
     Active Substance: ERENUMAB-AOOE
     Dosage: 70MG Q4W
     Route: 058
  27. SYNTHROID [Concomitant]
     Active Substance: LEVOTHYROXINE SODIUM
     Dosage: 50MCG QD
     Route: 048
     Dates: start: 20250408
  28. NEURONTIN [Concomitant]
     Active Substance: GABAPENTIN
     Dosage: 300MG TAKE 2 CAPSULES BY MOUTH IN THE MORNING AND 3 CAPSULES AT BEDTIME
     Route: 048
     Dates: start: 20250402
  29. COZAAR [Concomitant]
     Active Substance: LOSARTAN POTASSIUM
     Dosage: 25MG QD
     Route: 048
     Dates: start: 20250410
  30. ASPIRIN [Concomitant]
     Active Substance: ASPIRIN
     Dosage: 81MG QD
     Route: 048
     Dates: start: 20240608

REACTIONS (5)
  - Oxygen saturation decreased [Recovered/Resolved]
  - Chills [Unknown]
  - Nasopharyngitis [Unknown]
  - Chronic obstructive pulmonary disease [Recovered/Resolved]
  - Hypersensitivity [Unknown]

NARRATIVE: CASE EVENT DATE: 20250101
